FAERS Safety Report 9236524 (Version 1)
Quarter: 2013Q2

REPORT INFORMATION
  Report Type: Report from Study
  Country: JP (occurrence: JP)
  Receive Date: 20130417
  Receipt Date: 20130417
  Transmission Date: 20140414
  Serious: Yes (Hospitalization)
  Sender: FDA-Public Use
  Company Number: JP-JNJFOC-20130409461

PATIENT
  Age: 85 Year
  Sex: Female
  Weight: 57 kg

DRUGS (10)
  1. RIVAROXABAN [Suspect]
     Indication: THROMBOSIS PROPHYLAXIS
     Route: 048
     Dates: start: 20120918
  2. RIVAROXABAN [Suspect]
     Indication: CEREBROVASCULAR ACCIDENT PROPHYLAXIS
     Route: 048
     Dates: start: 20120918
  3. RABEPRAZOLE [Concomitant]
     Route: 048
  4. ETIZOLAM [Concomitant]
     Route: 048
  5. SIMVASTATIN [Concomitant]
     Route: 048
  6. UBIRON [Concomitant]
     Route: 048
  7. ALENDRONATE SODIUM [Concomitant]
     Route: 048
  8. ALFACALCIDOL [Concomitant]
     Route: 048
  9. AMLODIPINE [Concomitant]
     Route: 048
  10. ISOSORBIDE MONONITRATE [Concomitant]
     Route: 048

REACTIONS (1)
  - Anaemia [Recovered/Resolved]
